FAERS Safety Report 24464833 (Version 1)
Quarter: 2024Q4

REPORT INFORMATION
  Report Type: Report from Study
  Country: US (occurrence: US)
  Receive Date: 20241018
  Receipt Date: 20241018
  Transmission Date: 20250115
  Serious: No
  Sender: ROCHE
  Company Number: US-ROCHE-3509214

PATIENT
  Sex: Male
  Weight: 92.53 kg

DRUGS (15)
  1. XOLAIR [Suspect]
     Active Substance: OMALIZUMAB
     Indication: Urticaria
     Dosage: RECEIVES ONE INJECTION IN EACH SHOULDER EVERY 8-10 WEEKS ;ONGOING: YES
     Route: 065
     Dates: start: 202312
  2. XOLAIR [Suspect]
     Active Substance: OMALIZUMAB
     Dosage: RECEIVED ONE INJECTION IN EACH SHOULDER
     Route: 065
     Dates: start: 2023, end: 202312
  3. XOLAIR [Suspect]
     Active Substance: OMALIZUMAB
     Dosage: RECEIVED ONE INJECTION IN EACH SHOULDER EVERY 1 TO 1.5 MONTHS
     Route: 065
     Dates: start: 2020, end: 2023
  4. SKYRIZI [Concomitant]
     Active Substance: RISANKIZUMAB-RZAA
     Indication: Psoriasis
     Dosage: RECEIVED ONE 150MG SYRINGE
     Dates: start: 2023
  5. SKYRIZI [Concomitant]
     Active Substance: RISANKIZUMAB-RZAA
     Dosage: RECEIVED TWO 150MG SYRINGES
     Dates: end: 2023
  6. SKYRIZI [Concomitant]
     Active Substance: RISANKIZUMAB-RZAA
     Dosage: RECEIVED TWO 150MG SYRINGES
     Dates: start: 2020
  7. TAMSULOSIN [Concomitant]
     Active Substance: TAMSULOSIN
     Dosage: TAKES TWO CAPSULES EVERY NIGHT
     Route: 048
  8. ASPIRIN [Concomitant]
     Active Substance: ASPIRIN
     Indication: Anticoagulant therapy
     Dosage: TAKES EVERY DAY TO EVERY OTHER DAY
     Route: 048
     Dates: start: 2018
  9. METFORMIN [Concomitant]
     Active Substance: METFORMIN HYDROCHLORIDE
     Indication: Glucose tolerance impaired
     Dosage: TAKES ONE TABLET, TWICE A DAY
     Route: 048
  10. CARVEDILOL [Concomitant]
     Active Substance: CARVEDILOL
     Indication: Hypertension
     Route: 048
  11. CHLORTHALIDONE [Concomitant]
     Active Substance: CHLORTHALIDONE
     Indication: Hypertension
     Route: 048
  12. ATORVASTATIN [Concomitant]
     Active Substance: ATORVASTATIN
     Indication: Blood cholesterol increased
     Dosage: TAKES HALF OF A 80MG TABLET, ONCE A DAY
     Route: 048
  13. GABAPENTIN [Concomitant]
     Active Substance: GABAPENTIN
     Indication: Neuropathy peripheral
     Route: 048
  14. MONTELUKAST [Concomitant]
     Active Substance: MONTELUKAST
     Indication: Urticaria
     Dates: start: 2020
  15. SOLIFENACIN [Concomitant]
     Active Substance: SOLIFENACIN
     Dosage: TOOK IN THE MORNING
     Route: 048
     Dates: end: 202401

REACTIONS (10)
  - Urticaria [Not Recovered/Not Resolved]
  - Off label use [Unknown]
  - Memory impairment [Not Recovered/Not Resolved]
  - Blood glucose increased [Not Recovered/Not Resolved]
  - Muscle spasms [Recovered/Resolved]
  - Pain in extremity [Recovered/Resolved]
  - Back pain [Not Recovered/Not Resolved]
  - Burning sensation [Not Recovered/Not Resolved]
  - Spondylitis [Not Recovered/Not Resolved]
  - Scoliosis [Not Recovered/Not Resolved]

NARRATIVE: CASE EVENT DATE: 20200101
